FAERS Safety Report 6494641-8 (Version None)
Quarter: 2009Q4

REPORT INFORMATION
  Report Type: 
  Country: None (occurrence: None)
  Receive Date: 20091214
  Receipt Date: 20090311
  Transmission Date: 20100525
  Serious: No
  Sender: FDA-Public Use
  Company Number: US-BRISTOL-MYERS SQUIBB COMPANY-14539852

PATIENT
  Age: 14 Year
  Sex: Female

DRUGS (4)
  1. ABILIFY [Suspect]
     Indication: TOURETTE'S DISORDER
     Dates: start: 20060101
  2. KARIVA [Concomitant]
  3. METFORMIN [Concomitant]
  4. TRAZODONE HCL [Concomitant]

REACTIONS (1)
  - POLYCYSTIC OVARIES [None]
